FAERS Safety Report 9529313 (Version 1)
Quarter: 2013Q1

REPORT INFORMATION
  Report Type: Spontaneous
  Country: US (occurrence: None)
  Receive Date: 20130320
  Receipt Date: 20130320
  Transmission Date: 20140127
  Serious: Yes (Death, Other)
  Sender: FDA-Public Use
  Company Number: 075242

PATIENT
  Age: 51 Year
  Sex: Female

DRUGS (4)
  1. ALPRAZOLAM [Suspect]
  2. METAMFETAMINE [Suspect]
  3. METHADONE [Suspect]
  4. IMIPRAMINE [Suspect]

REACTIONS (1)
  - Completed suicide [None]
